FAERS Safety Report 6702092-3 (Version None)
Quarter: 2010Q2

REPORT INFORMATION
  Report Type: 
  Country: None (occurrence: None)
  Receive Date: 20100429
  Receipt Date: 20100421
  Transmission Date: 20101027
  Serious: Yes (Death)
  Sender: FDA-Public Use
  Company Number: VE-MEDIMMUNE-MEDI-0011132

PATIENT
  Sex: Female
  Weight: 4 kg

DRUGS (1)
  1. SYNAGIS [Suspect]
     Dates: start: 20100318, end: 20100318

REACTIONS (1)
  - DEATH [None]
